FAERS Safety Report 6418599-2 (Version None)
Quarter: 2009Q4

REPORT INFORMATION
  Report Type: 
  Country: None (occurrence: None)
  Receive Date: 20091028
  Receipt Date: 20091016
  Transmission Date: 20100525
  Serious: Yes (Other)
  Sender: FDA-Public Use
  Company Number: PHHY2009BR45133

PATIENT
  Sex: Male
  Weight: 70 kg

DRUGS (5)
  1. TEGRETOL-XR [Suspect]
     Indication: CONVULSION
     Dosage: 200 MG 1 TABLET BID
     Route: 048
     Dates: start: 20050101
  2. TEGRETOL-XR [Suspect]
     Dosage: (200MG) 1.5 TABLET BID
     Route: 048
  3. TEGRETOL-XR [Suspect]
     Dosage: (400MG) 1 TABLET BID
     Route: 048
     Dates: start: 20090701
  4. PHENOBARBITAL [Concomitant]
     Indication: CONVULSION
     Dosage: 1 TABLET AT NIGHT
     Route: 048
     Dates: start: 20070101
  5. DEPAKOTE [Concomitant]
     Dosage: 1 TABLET DAILY

REACTIONS (8)
  - ALOPECIA [None]
  - BURNING SENSATION [None]
  - CHOLELITHIASIS [None]
  - CONVULSION [None]
  - DANDRUFF [None]
  - ERYTHEMA [None]
  - PRURITUS [None]
  - SKIN EXFOLIATION [None]
